APPROVED DRUG PRODUCT: ARISTOSPAN
Active Ingredient: TRIAMCINOLONE HEXACETONIDE
Strength: 20MG/ML **Federal Register determination that product was not discontinued or withdrawn for safety or effectiveness reasons**
Dosage Form/Route: INJECTABLE;INJECTION
Application: N016466 | Product #002
Applicant: ETHYPHARM INC
Approved: Approved Prior to Jan 1, 1982 | RLD: Yes | RS: No | Type: DISCN